FAERS Safety Report 7288183-X (Version None)
Quarter: 2011Q1

REPORT INFORMATION
  Report Type: 
  Country: None (occurrence: None)
  Receive Date: 20110211
  Receipt Date: 20110201
  Transmission Date: 20110831
  Serious: Yes (Hospitalization)
  Sender: FDA-Public Use
  Company Number: JP-JNJFOC-20110201228

PATIENT
  Age: 8 Year
  Sex: Female

DRUGS (2)
  1. CARBAMAZEPINE [Suspect]
     Indication: PRODUCT USED FOR UNKNOWN INDICATION
  2. RISPERDAL [Suspect]
     Indication: PRODUCT USED FOR UNKNOWN INDICATION
     Route: 048

REACTIONS (7)
  - FEELING COLD [None]
  - DRUG PRESCRIBING ERROR [None]
  - SEDATION [None]
  - SOMNOLENCE [None]
  - DECREASED ACTIVITY [None]
  - DYSKINESIA [None]
  - TREMOR [None]
